FAERS Safety Report 9417715 (Version 1)
Quarter: 2013Q3

REPORT INFORMATION
  Report Type: Spontaneous
  Country: CA (occurrence: CA)
  Receive Date: 20130724
  Receipt Date: 20130724
  Transmission Date: 20140515
  Serious: Yes (Other)
  Sender: FDA-Public Use
  Company Number: CA-GLAXOSMITHKLINE-A0927731A

PATIENT
  Age: 65 Year
  Sex: Male
  Weight: 94.5 kg

DRUGS (11)
  1. ADVAIR [Suspect]
     Indication: CHRONIC OBSTRUCTIVE PULMONARY DISEASE
     Dosage: 1PUFF TWICE PER DAY
     Route: 055
     Dates: start: 2010
  2. SALBUTAMOL [Suspect]
  3. AVAPRO [Concomitant]
     Dosage: 300MG PER DAY
  4. AMLODIPINE BESYLATE [Concomitant]
     Dosage: 5MG PER DAY
  5. VITAMIN C [Concomitant]
  6. MULTIVITAMIN [Concomitant]
  7. ARTHROTEC [Concomitant]
  8. CRESTOR [Concomitant]
  9. ASA [Concomitant]
  10. AVAMYS [Concomitant]
  11. SPIRIVA [Concomitant]

REACTIONS (7)
  - Oropharyngeal pain [Recovered/Resolved]
  - Ageusia [Not Recovered/Not Resolved]
  - Respiratory tract congestion [Not Recovered/Not Resolved]
  - Total lung capacity decreased [Unknown]
  - Choking [Recovered/Resolved]
  - Back disorder [Unknown]
  - Drug ineffective [Unknown]
